FAERS Safety Report 6919567-4 (Version None)
Quarter: 2010Q3

REPORT INFORMATION
  Report Type: 
  Country: None (occurrence: None)
  Receive Date: 20100811
  Receipt Date: 20100803
  Transmission Date: 20110219
  Serious: No
  Sender: FDA-Public Use
  Company Number: US-ALLERGAN-0904673US

PATIENT
  Age: 61 Year
  Sex: Female

DRUGS (14)
  1. ACZONE [Suspect]
     Indication: ROSACEA
     Dosage: 1 PEA-SIZED AMOUNT, ENTIRE FACE, BID
     Route: 061
     Dates: start: 20090211, end: 20100301
  2. ORACEA [Concomitant]
     Indication: PRODUCT USED FOR UNKNOWN INDICATION
     Dosage: 40 MG, QD
     Route: 048
     Dates: start: 20090312, end: 20090414
  3. ORACEA [Concomitant]
     Dosage: 40 MG, QOD
     Route: 048
     Dates: start: 20090415, end: 20100422
  4. ORACEA [Concomitant]
     Dosage: TAKE X 2 WEEKS FOR FLARES
     Route: 048
     Dates: start: 20100422
  5. SYNTHROID [Concomitant]
     Indication: AUTOIMMUNE THYROIDITIS
     Dosage: 0.88 MG, QD
     Route: 048
     Dates: start: 19960101
  6. MULTI-VITAMIN [Concomitant]
     Indication: SUPPLEMENTATION THERAPY
     Dosage: 1 UNK, QD
     Route: 048
  7. GLUCOSAMINE [Concomitant]
     Indication: SUPPLEMENTATION THERAPY
     Dosage: UNK
     Route: 048
  8. FISH OIL [Concomitant]
     Indication: SUPPLEMENTATION THERAPY
     Dosage: 1 UNK, UNK
     Route: 048
  9. MELATONIN [Concomitant]
     Indication: SUPPLEMENTATION THERAPY
     Dosage: UNK
     Route: 048
  10. ASCORBIC ACID [Concomitant]
     Indication: SUPPLEMENTATION THERAPY
     Dosage: UNK
     Route: 048
  11. VITAMIN D [Concomitant]
     Indication: SUPPLEMENTATION THERAPY
     Dosage: UNK
     Route: 048
  12. AMBIEN [Concomitant]
     Indication: PRODUCT USED FOR UNKNOWN INDICATION
     Dosage: UNK
     Route: 048
  13. ESTRING [Concomitant]
     Indication: PRODUCT USED FOR UNKNOWN INDICATION
     Dosage: UNK
  14. OVACE PLUS WASH [Concomitant]
     Indication: PRODUCT USED FOR UNKNOWN INDICATION
     Dosage: UNK
     Route: 061
     Dates: start: 20090211

REACTIONS (4)
  - DRUG INEFFECTIVE [None]
  - GINGIVAL BLEEDING [None]
  - GINGIVAL ERYTHEMA [None]
  - GINGIVAL PAIN [None]
